FAERS Safety Report 7751297-1 (Version None)
Quarter: 2011Q3

REPORT INFORMATION
  Report Type: 
  Country: None (occurrence: None)
  Receive Date: 20110912
  Receipt Date: 20110829
  Transmission Date: 20111222
  Serious: Yes (Hospitalization)
  Sender: FDA-Public Use
  Company Number: AUR-APL-2011-04871

PATIENT
  Age: 65 Year
  Sex: Female

DRUGS (6)
  1. LISINOPRIL [Suspect]
     Indication: HYPERTENSION
     Dosage: 40 MG, 1 D,
  2. METOPROLOL TARTRATE [Suspect]
     Indication: HYPERTENSION
     Dosage: 100 MG (50 MG, 2 IN 1 D),
  3. AMLODIPINE [Suspect]
     Indication: HYPERTENSION
     Dosage: 10 MG, 1 D
  4. FUROSEMIDE [Suspect]
     Indication: HYPERTENSION
     Dosage: 160 MG (80 MG, 2 IN 1 D),
  5. HYDRALAZINE HCL [Concomitant]
  6. CLONIDINE [Suspect]
     Indication: HYPERTENSION
     Dosage: 0.2 MG (0.1 MG, 2 IN 1 D)

REACTIONS (4)
  - SINUS BRADYCARDIA [None]
  - DYSARTHRIA [None]
  - VISION BLURRED [None]
  - SINUS ARRHYTHMIA [None]
